FAERS Safety Report 4593980-5 (Version None)
Quarter: 2005Q1

REPORT INFORMATION
  Report Type: 
  Country: None (occurrence: None)
  Receive Date: 20050218
  Receipt Date: 20050209
  Transmission Date: 20050727
  Serious: Yes (Other)
  Sender: FDA-Public Use
  Company Number: 2004-12-1219

PATIENT
  Age: 41 Year
  Sex: Male
  Weight: 94 kg

DRUGS (3)
  1. VIRAFERONPEG [Suspect]
     Indication: HEPATITIS C
     Dosage: 150 ?G QW SUBCUTANEOUS
     Route: 058
     Dates: start: 20040915, end: 20041212
  2. RIBAVIRIN [Suspect]
     Indication: HEPATITIS C
     Dosage: 1200 MG QD ORAL
     Route: 048
     Dates: start: 20040915, end: 20041212
  3. RABEPRAZOLE SODIUM [Concomitant]

REACTIONS (12)
  - ABDOMINAL PAIN UPPER [None]
  - CHILLS [None]
  - ERYTHEMA [None]
  - HEPATITIS C RNA POSITIVE [None]
  - HYPERSENSITIVITY [None]
  - LOSS OF CONSCIOUSNESS [None]
  - MALAISE [None]
  - PALPITATIONS [None]
  - SYNCOPE [None]
  - TACHYCARDIA [None]
  - TRANSAMINASES INCREASED [None]
  - TREMOR [None]
